FAERS Safety Report 18712419 (Version 2)
Quarter: 2021Q3

REPORT INFORMATION
  Report Type: Report from Study
  Country: FR (occurrence: FR)
  Receive Date: 20210107
  Receipt Date: 20210721
  Transmission Date: 20211014
  Serious: Yes (Hospitalization)
  Sender: FDA-Public Use
  Company Number: FR-TAKEDA-FR201850886

PATIENT
  Age: 69 Year
  Sex: Female

DRUGS (24)
  1. TEDUGLUTIDE [Suspect]
     Active Substance: TEDUGLUTIDE
     Indication: SHORT-BOWEL SYNDROME
     Dosage: UNK
     Route: 065
     Dates: start: 20180328
  2. TEDUGLUTIDE [Suspect]
     Active Substance: TEDUGLUTIDE
     Indication: SHORT-BOWEL SYNDROME
     Dosage: UNK
     Route: 065
     Dates: start: 20180328
  3. TEDUGLUTIDE [Suspect]
     Active Substance: TEDUGLUTIDE
     Dosage: 2.02 MILLIGRAM (0.04MG/KG), QD
     Route: 065
     Dates: start: 20181114, end: 20190922
  4. TEDUGLUTIDE [Suspect]
     Active Substance: TEDUGLUTIDE
     Dosage: 2.20 MILLIGRAM (0.05MG/KG), QD
     Route: 065
     Dates: start: 20201124
  5. TEDUGLUTIDE [Suspect]
     Active Substance: TEDUGLUTIDE
     Dosage: 2.45 MILLIGRAM (0.05MG/KG), QD
     Route: 065
     Dates: start: 20180328, end: 20181114
  6. TEDUGLUTIDE [Suspect]
     Active Substance: TEDUGLUTIDE
     Dosage: 2.02 MILLIGRAM (0.04MG/KG), QD
     Route: 065
     Dates: start: 20181114, end: 20190922
  7. TEDUGLUTIDE [Suspect]
     Active Substance: TEDUGLUTIDE
     Dosage: 2.02 MILLIGRAM (0.04MG/KG), QD
     Route: 065
     Dates: start: 20181114, end: 20190922
  8. TEDUGLUTIDE [Suspect]
     Active Substance: TEDUGLUTIDE
     Dosage: 2.20 MILLIGRAM (0.05MG/KG), QD
     Route: 065
     Dates: start: 20201124
  9. ATORVASTATINE [Concomitant]
     Active Substance: ATORVASTATIN
     Indication: CEREBROVASCULAR ACCIDENT
     Dosage: 10 MILLIGRAM, QD
     Route: 048
     Dates: start: 2008
  10. PERINDOPRIL [Concomitant]
     Active Substance: PERINDOPRIL
     Indication: BLOOD PRESSURE INCREASED
     Dosage: 25 MILLIGRAM, QD
     Route: 048
  11. TEDUGLUTIDE [Suspect]
     Active Substance: TEDUGLUTIDE
     Indication: SHORT-BOWEL SYNDROME
     Dosage: UNK
     Route: 065
     Dates: start: 20180328
  12. TEDUGLUTIDE [Suspect]
     Active Substance: TEDUGLUTIDE
     Dosage: 2.45 MILLIGRAM (0.05MG/KG), QD
     Route: 065
     Dates: start: 20180328, end: 20181114
  13. TEDUGLUTIDE [Suspect]
     Active Substance: TEDUGLUTIDE
     Dosage: 2.04 MILLIGRAM (0.05MG/KG), QD
     Route: 065
     Dates: start: 20190923, end: 20201124
  14. TEDUGLUTIDE [Suspect]
     Active Substance: TEDUGLUTIDE
     Dosage: 2.20 MILLIGRAM (0.05MG/KG), QD
     Route: 065
     Dates: start: 20201124
  15. ORACILLINE [Concomitant]
     Active Substance: PENICILLIN V
     Indication: SPLENECTOMY
     Dosage: 1000000 UNK, BID
     Route: 048
     Dates: start: 20170111
  16. TEDUGLUTIDE [Suspect]
     Active Substance: TEDUGLUTIDE
     Dosage: 2.45 MILLIGRAM (0.05MG/KG), QD
     Route: 065
     Dates: start: 20180328, end: 20181114
  17. TEDUGLUTIDE [Suspect]
     Active Substance: TEDUGLUTIDE
     Dosage: 2.02 MILLIGRAM (0.04MG/KG), QD
     Route: 065
     Dates: start: 20181114, end: 20190922
  18. TEDUGLUTIDE [Suspect]
     Active Substance: TEDUGLUTIDE
     Dosage: 2.04 MILLIGRAM (0.05MG/KG), QD
     Route: 065
     Dates: start: 20190923, end: 20201124
  19. TEDUGLUTIDE [Suspect]
     Active Substance: TEDUGLUTIDE
     Indication: SHORT-BOWEL SYNDROME
     Dosage: UNK
     Route: 065
     Dates: start: 20180328
  20. TEDUGLUTIDE [Suspect]
     Active Substance: TEDUGLUTIDE
     Dosage: 2.04 MILLIGRAM (0.05MG/KG), QD
     Route: 065
     Dates: start: 20190923, end: 20201124
  21. TEDUGLUTIDE [Suspect]
     Active Substance: TEDUGLUTIDE
     Dosage: 2.04 MILLIGRAM (0.05MG/KG), QD
     Route: 065
     Dates: start: 20190923, end: 20201124
  22. TEDUGLUTIDE [Suspect]
     Active Substance: TEDUGLUTIDE
     Dosage: 2.45 MILLIGRAM (0.05MG/KG), QD
     Route: 065
     Dates: start: 20180328, end: 20181114
  23. TEDUGLUTIDE [Suspect]
     Active Substance: TEDUGLUTIDE
     Dosage: 2.20 MILLIGRAM (0.05MG/KG), QD
     Route: 065
     Dates: start: 20201124
  24. URSOLVAN [Concomitant]
     Active Substance: URSODIOL
     Indication: CHOLESTASIS
     Dosage: 200 MILLIGRAM, BID
     Route: 048

REACTIONS (1)
  - Device occlusion [Recovered/Resolved]

NARRATIVE: CASE EVENT DATE: 20180718
